FAERS Safety Report 8947641 (Version 4)
Quarter: 2013Q1

REPORT INFORMATION
  Report Type: Spontaneous
  Country: JP (occurrence: JP)
  Receive Date: 20121204
  Receipt Date: 20130207
  Transmission Date: 20140127
  Serious: Yes (Life-Threatening, Hospitalization, Other)
  Sender: FDA-Public Use
  Company Number: JP-PFIZER INC-2012303366

PATIENT
  Age: 65 Year
  Sex: Female
  Weight: 64 kg

DRUGS (19)
  1. ATORVASTATIN CALCIUM [Suspect]
     Indication: DYSLIPIDAEMIA
     Dosage: UNK
     Route: 048
     Dates: end: 20121024
  2. TARCEVA [Suspect]
     Indication: LUNG NEOPLASM MALIGNANT
     Dosage: 150 MG, 1X/DAY
     Route: 048
     Dates: start: 20121003, end: 20121020
  3. RIVOTRIL [Interacting]
     Indication: CERVICOBRACHIAL SYNDROME
     Dosage: 0.5 MG, ONE PER ONE DAY
     Route: 048
     Dates: end: 20121024
  4. CLARITHROMYCIN [Interacting]
     Indication: BRONCHITIS
     Dosage: 400 MG, 1X/DAY
     Route: 048
     Dates: start: 20120625, end: 20121024
  5. METHYCOBAL [Concomitant]
     Dosage: 500 UG, UNK
     Dates: end: 20121024
  6. MYONAL [Concomitant]
     Dosage: 50 MG, UNK
     Dates: end: 20121024
  7. OMEPRAZOLE [Concomitant]
     Dosage: UNK
     Dates: end: 20121024
  8. LIMAPROST [Concomitant]
     Dosage: UNK
     Dates: end: 20121024
  9. CODEINE PHOSPHATE [Concomitant]
     Dosage: 2 G, UNK
     Dates: end: 20121024
  10. SHAKUYAKUKANZOUTOU [Concomitant]
     Dosage: UNK
     Dates: end: 20121024
  11. ALINAMIN F [Concomitant]
     Dosage: 25 MG, UNK
     Dates: end: 20121024
  12. FUROSEMIDE [Concomitant]
     Dosage: UNK
     Dates: end: 20121024
  13. EBRANTIL [Concomitant]
     Dosage: 15 MG, UNK
     Dates: end: 20121024
  14. COLDRIN [Concomitant]
     Dosage: 25 MG, UNK
     Dates: end: 20121024
  15. ETIZOLAM [Concomitant]
     Dosage: UNK
     Dates: end: 20121024
  16. LOXOPROFEN [Concomitant]
     Dosage: 60 MG, UNK
     Dates: end: 20121024
  17. MAGMITT [Concomitant]
     Dosage: 250 MG, UNK
     Dates: end: 20121024
  18. BAYASPIRIN [Concomitant]
     Dosage: UNK
     Dates: end: 20121024
  19. GLORIAMIN [Concomitant]
     Dosage: 0.67 G, UNK

REACTIONS (10)
  - Drug interaction [Unknown]
  - Ventricular tachycardia [Recovered/Resolved]
  - Electrocardiogram QT prolonged [Recovered/Resolved]
  - Cardiac arrest [Recovered/Resolved]
  - Hypocalcaemia [Recovered/Resolved]
  - Diarrhoea [Unknown]
  - Torsade de pointes [Unknown]
  - Blood pressure decreased [Unknown]
  - Nausea [Unknown]
  - Vomiting [Unknown]
